FAERS Safety Report 18827688 (Version 1)
Quarter: 2021Q1

REPORT INFORMATION
  Report Type: Spontaneous
  Country: US (occurrence: US)
  Receive Date: 20210201
  Receipt Date: 20210201
  Transmission Date: 20210419
  Serious: No
  Sender: FDA-Public Use
  Company Number: US-ABBVIE-20K-163-3462328-00

PATIENT
  Sex: Female

DRUGS (1)
  1. HUMIRA [Suspect]
     Active Substance: ADALIMUMAB
     Indication: PRODUCT USED FOR UNKNOWN INDICATION
     Route: 058

REACTIONS (8)
  - Emotional distress [Unknown]
  - Condition aggravated [Unknown]
  - Eczema [Unknown]
  - Hidradenitis [Unknown]
  - Flatulence [Unknown]
  - Adverse drug reaction [Unknown]
  - Joint swelling [Unknown]
  - Pain [Not Recovered/Not Resolved]
